FAERS Safety Report 5474749-6 (Version None)
Quarter: 2007Q4

REPORT INFORMATION
  Report Type: 
  Country: None (occurrence: None)
  Receive Date: 20071002
  Receipt Date: 20070924
  Transmission Date: 20080405
  Serious: Yes (Hospitalization)
  Sender: FDA-Public Use
  Company Number: A0676779A

PATIENT
  Age: 53 Year
  Sex: Male
  Weight: 61.4 kg

DRUGS (9)
  1. CARVEDILOL PHOSPHATE [Suspect]
     Indication: HYPERTENSION
     Route: 048
     Dates: start: 20070810
  2. LISINOPRIL [Suspect]
     Indication: HYPERTENSION
     Dosage: 10MG PER DAY
     Route: 048
     Dates: start: 20070810
  3. NORVASC [Concomitant]
     Indication: HYPERTENSION
     Dosage: 5MG PER DAY
     Dates: start: 20070823
  4. THIAMINE [Concomitant]
     Indication: SUPPLEMENTATION THERAPY
     Dosage: 100MG PER DAY
     Dates: start: 20070827
  5. FAMOTIDINE [Concomitant]
     Indication: PROPHYLAXIS
     Dosage: 20MG TWICE PER DAY
     Route: 048
     Dates: start: 20070827
  6. MULTI-VITAMIN [Concomitant]
     Indication: SUPPLEMENTATION THERAPY
     Dosage: 1TAB PER DAY
     Route: 048
     Dates: start: 20070827
  7. CONTIN [Concomitant]
     Indication: PAIN
     Dosage: 1MG THREE TIMES PER DAY
     Route: 048
     Dates: start: 20070827
  8. MORPHINE [Concomitant]
     Indication: PAIN
     Dosage: 15MG AS REQUIRED
     Route: 048
     Dates: start: 20070827
  9. TRANXENE [Concomitant]
     Indication: ALCOHOL WITHDRAWAL SYNDROME
     Route: 048
     Dates: start: 20070823, end: 20070827

REACTIONS (3)
  - ANGIOEDEMA [None]
  - OEDEMA PERIPHERAL [None]
  - SWELLING FACE [None]
